FAERS Safety Report 25383892 (Version 1)
Quarter: 2025Q2

REPORT INFORMATION
  Report Type: Spontaneous
  Country: JP (occurrence: JP)
  Receive Date: 20250602
  Receipt Date: 20250602
  Transmission Date: 20250716
  Serious: Yes (Other)
  Sender: GILEAD
  Company Number: JP-GILEAD-2025-0712132

PATIENT
  Age: 45 Year
  Sex: Female
  Weight: 52 kg

DRUGS (7)
  1. TRODELVY [Suspect]
     Active Substance: SACITUZUMAB GOVITECAN-HZIY
     Indication: Triple negative breast cancer
     Route: 042
     Dates: start: 20250404
  2. LOXOPROFEN SODIUM [Concomitant]
     Active Substance: LOXOPROFEN SODIUM
  3. PALONOSETRON [Concomitant]
     Active Substance: PALONOSETRON
     Indication: Chemotherapy side effect prophylaxis
     Dates: start: 20250404
  4. DEXAMETHASONE SODIUM PHOSPHATE [Concomitant]
     Active Substance: DEXAMETHASONE SODIUM PHOSPHATE
     Indication: Chemotherapy side effect prophylaxis
     Dates: start: 20250404
  5. POLARAMINE [Concomitant]
     Active Substance: DEXCHLORPHENIRAMINE MALEATE
     Indication: Chemotherapy side effect prophylaxis
     Dates: start: 20250404
  6. FAMOTIDINE [Concomitant]
     Active Substance: FAMOTIDINE
     Indication: Chemotherapy side effect prophylaxis
     Dates: start: 20250404
  7. APREPITANT [Concomitant]
     Active Substance: APREPITANT
     Indication: Chemotherapy side effect prophylaxis
     Dates: start: 20250404

REACTIONS (2)
  - Triple negative breast cancer [Unknown]
  - Constipation [Recovered/Resolved]

NARRATIVE: CASE EVENT DATE: 20250101
